FAERS Safety Report 20023266 (Version 4)
Quarter: 2022Q3

REPORT INFORMATION
  Report Type: Spontaneous
  Country: JP (occurrence: JP)
  Receive Date: 20211102
  Receipt Date: 20220714
  Transmission Date: 20221027
  Serious: Yes (Hospitalization)
  Sender: FDA-Public Use
  Company Number: JP-GLAXOSMITHKLINE-JP2021JPN225098

PATIENT

DRUGS (5)
  1. LAMICTAL [Suspect]
     Active Substance: LAMOTRIGINE
     Indication: Mental disorder
     Dosage: 25 MG
     Dates: start: 20210913, end: 20211009
  2. INTUNIV [Concomitant]
     Active Substance: GUANFACINE HYDROCHLORIDE
     Indication: Mental disorder
     Dosage: 1 MG
     Route: 048
     Dates: end: 20211016
  3. STRATTERA [Concomitant]
     Active Substance: ATOMOXETINE HYDROCHLORIDE
     Indication: Mental disorder
     Dosage: 10 MG
     Route: 048
     Dates: end: 20211016
  4. ZOLPIDEM TARTRATE [Concomitant]
     Active Substance: ZOLPIDEM TARTRATE
     Indication: Mental disorder
     Dosage: 10 MG
     Route: 048
     Dates: end: 20211016
  5. ETIZOLAM [Concomitant]
     Active Substance: ETIZOLAM
     Indication: Mental disorder
     Dosage: 1 MG
     Route: 048
     Dates: end: 20211016

REACTIONS (3)
  - Rash [Recovering/Resolving]
  - Erythema [Recovering/Resolving]
  - Product use issue [Unknown]

NARRATIVE: CASE EVENT DATE: 20211009
